FAERS Safety Report 15476670 (Version 1)
Quarter: 2018Q4

REPORT INFORMATION
  Report Type: Spontaneous
  Country: PL (occurrence: PL)
  Receive Date: 20181009
  Receipt Date: 20181009
  Transmission Date: 20190205
  Serious: Yes (Hospitalization)
  Sender: FDA-Public Use
  Company Number: PL-ABBVIE-18S-129-2513628-00

PATIENT
  Age: 6 Year
  Sex: Male

DRUGS (1)
  1. KLACID [Suspect]
     Active Substance: CLARITHROMYCIN
     Indication: PRODUCT USED FOR UNKNOWN INDICATION
     Dosage: UNK (SINGLE DOSE)
     Route: 042
     Dates: start: 20181002, end: 20181002

REACTIONS (1)
  - Incorrect route of product administration [Recovering/Resolving]

NARRATIVE: CASE EVENT DATE: 20181002
